FAERS Safety Report 24088091 (Version 1)
Quarter: 2024Q3

REPORT INFORMATION
  Report Type: Spontaneous
  Country: US (occurrence: US)
  Receive Date: 20240715
  Receipt Date: 20240715
  Transmission Date: 20241017
  Serious: No
  Sender: BOEHRINGER INGELHEIM
  Company Number: US-BoehringerIngelheim-2024-BI-039670

PATIENT
  Age: 52 Year
  Sex: Female

DRUGS (2)
  1. MICARDIS [Suspect]
     Active Substance: TELMISARTAN
     Indication: Hypertension
     Dosage: DAILY DOSE: 40 MILLIGRAM(S)
     Dates: start: 2019
  2. MICARDIS [Suspect]
     Active Substance: TELMISARTAN
     Dosage: DAILY DOSE: 80 MILLIGRAM(S)
     Dates: start: 2019, end: 202406

REACTIONS (3)
  - Blood cholesterol increased [Not Recovered/Not Resolved]
  - Photopsia [Not Recovered/Not Resolved]
  - Blood calcium decreased [Unknown]

NARRATIVE: CASE EVENT DATE: 20200101
